FAERS Safety Report 15693065 (Version 1)
Quarter: 2018Q4

REPORT INFORMATION
  Report Type: Spontaneous
  Country: CA (occurrence: CA)
  Receive Date: 20181206
  Receipt Date: 20181206
  Transmission Date: 20190205
  Serious: Yes (Hospitalization)
  Sender: FDA-Public Use
  Company Number: CA-TEVA-2018-CA-984587

PATIENT
  Age: 40 Day
  Sex: Male

DRUGS (1)
  1. LAMOTRIGINE. [Suspect]
     Active Substance: LAMOTRIGINE
     Route: 063

REACTIONS (7)
  - Normochromic normocytic anaemia [Unknown]
  - Pallor [Unknown]
  - Food refusal [Unknown]
  - Flatulence [Unknown]
  - Mucosal discolouration [Unknown]
  - Crying [Unknown]
  - Neutropenia [Unknown]
